FAERS Safety Report 4679775-2 (Version None)
Quarter: 2005Q2

REPORT INFORMATION
  Report Type: 
  Country: None (occurrence: None)
  Receive Date: 20050531
  Receipt Date: 20050517
  Transmission Date: 20051028
  Serious: Yes (Life-Threatening)
  Sender: FDA-Public Use
  Company Number: RS005207-GB

PATIENT
  Age: 74 Year
  Sex: Female

DRUGS (2)
  1. RABEPRAZOLE SODIUM [Suspect]
     Indication: OESOPHAGITIS
     Dosage: 20 MG, ORAL
     Route: 048
     Dates: start: 20050112, end: 20050420
  2. DOTHIEPIN HYDROCHLORIDE [Concomitant]

REACTIONS (4)
  - BLOOD CREATININE INCREASED [None]
  - NEPHRITIS [None]
  - RED BLOOD CELL SEDIMENTATION RATE INCREASED [None]
  - RENAL IMPAIRMENT [None]
